FAERS Safety Report 8939786 (Version 1)
Quarter: 2012Q4

REPORT INFORMATION
  Report Type: 
  Country: US (occurrence: US)
  Receive Date: 20121130
  Receipt Date: 20121130
  Transmission Date: 20130627
  Serious: No
  Sender: FDA-Public Use
  Company Number: US-009507513-1211USA012915

PATIENT
  Age: 5 Year
  Sex: Male

DRUGS (2)
  1. CLARITIN ORAL SOLUTION [Suspect]
     Indication: PRODUCT USED FOR UNKNOWN INDICATION
     Dosage: 5 mg, bid
     Route: 048
     Dates: start: 20121016
  2. CLARITIN ORAL SOLUTION [Suspect]
     Dosage: UNK

REACTIONS (1)
  - Overdose [Unknown]
